FAERS Safety Report 12172970 (Version 2)
Quarter: 2016Q2

REPORT INFORMATION
  Report Type: Report from Study
  Country: HU (occurrence: HU)
  Receive Date: 20160311
  Receipt Date: 20160415
  Transmission Date: 20160815
  Serious: Yes (Hospitalization)
  Sender: FDA-Public Use
  Company Number: HU-JNJFOC-20160209441

PATIENT
  Age: 51 Year
  Sex: Male

DRUGS (6)
  1. VEROSPIRON [Concomitant]
     Active Substance: SPIRONOLACTONE
     Dosage: ? AT MORNINGS, ? AT NOONS
     Route: 065
  2. MAGNESIUM [Concomitant]
     Active Substance: MAGNESIUM
     Route: 065
  3. STELARA [Suspect]
     Active Substance: USTEKINUMAB
     Indication: PSORIASIS
     Route: 058
  4. NOGACID-D [Concomitant]
     Dosage: 1 AT MORNINGS, 1 AT NOONS
     Route: 065
  5. UREGYT [Concomitant]
     Dosage: 1 AT MORNINGS, 1 AT NOONS
     Route: 065
  6. POTASSIUM [Concomitant]
     Active Substance: POTASSIUM
     Dosage: 1 AT EVENINGS
     Route: 065

REACTIONS (9)
  - Hepatic cirrhosis [Not Recovered/Not Resolved]
  - Dizziness [Not Recovered/Not Resolved]
  - Sleep disorder [Unknown]
  - Asthenia [Not Recovered/Not Resolved]
  - Depression [Not Recovered/Not Resolved]
  - Nausea [Not Recovered/Not Resolved]
  - Vomiting [Not Recovered/Not Resolved]
  - Tremor [Not Recovered/Not Resolved]
  - Affective disorder [Unknown]

NARRATIVE: CASE EVENT DATE: 201512
